FAERS Safety Report 6579026-8 (Version None)
Quarter: 2010Q1

REPORT INFORMATION
  Report Type: 
  Country: None (occurrence: None)
  Receive Date: 20100212
  Receipt Date: 20100201
  Transmission Date: 20100710
  Serious: Yes (Life-Threatening, Hospitalization)
  Sender: FDA-Public Use
  Company Number: FR-KINGPHARMUSA00001-K201000080

PATIENT
  Age: 53 Year
  Sex: Female

DRUGS (8)
  1. ALTACE [Suspect]
     Indication: HYPERTENSION
     Dosage: 10 MG, QD
     Route: 048
     Dates: start: 20060101
  2. METFORMIN HCL [Suspect]
     Indication: TYPE 2 DIABETES MELLITUS
     Dosage: 3000 MG, QD
     Route: 048
     Dates: start: 20050901
  3. RHEFLUIN [Suspect]
     Dosage: 2.5/25 MG, QD
     Route: 048
  4. DIAPREL [Concomitant]
     Dosage: 90 MG, QD
     Route: 048
  5. LACIPIL [Concomitant]
     Dosage: 4 MG, QD
  6. LOKREN [Concomitant]
     Dosage: 20 MG, QD
  7. SIMVASTATIN [Concomitant]
     Dosage: 20 MG, QD
  8. LEVOTHYROXINE SODIUM [Concomitant]
     Dosage: 150 UG, QD

REACTIONS (9)
  - ASTHENIA [None]
  - BLOOD GLUCOSE ABNORMAL [None]
  - DEHYDRATION [None]
  - DYSPNOEA [None]
  - HYPOTENSION [None]
  - LACTIC ACIDOSIS [None]
  - LOSS OF CONSCIOUSNESS [None]
  - PAIN IN EXTREMITY [None]
  - RENAL FAILURE ACUTE [None]
